FAERS Safety Report 18961201 (Version 3)
Quarter: 2023Q4

REPORT INFORMATION
  Report Type: Other
  Country: DK (occurrence: None)
  Receive Date: 20210302
  Receipt Date: 20231222
  Transmission Date: 20240110
  Serious: Yes (Other)
  Sender: FDA-Public Use
  Company Number: DK-ROCHE-2771563

PATIENT

DRUGS (4)
  1. TOCILIZUMAB [Suspect]
     Active Substance: TOCILIZUMAB
     Indication: Rheumatoid arthritis
     Route: 042
  2. TOCILIZUMAB [Suspect]
     Active Substance: TOCILIZUMAB
     Indication: Rheumatoid arthritis
     Route: 058
  3. METHOTREXATE [Suspect]
     Active Substance: METHOTREXATE
     Indication: Rheumatoid arthritis
     Dosage: ON DAY 1 ESCALATED WITHIN FOUR WEEKS
     Route: 065
  4. FOLIC ACID [Concomitant]
     Active Substance: FOLIC ACID
     Dosage: MINIMUM 5 MG EVERY WEEK

REACTIONS (252)
  - Interstitial lung disease [Unknown]
  - Cystitis [Unknown]
  - Anal cancer [Unknown]
  - Sarcoidosis [Unknown]
  - Cerebrovascular accident [Unknown]
  - Rehabilitation therapy [Unknown]
  - Papillary thyroid cancer [Unknown]
  - Neutropenia [Unknown]
  - Cardiac failure [Unknown]
  - Angina pectoris [Unknown]
  - Gastrointestinal haemorrhage [Unknown]
  - Borrelia infection [Unknown]
  - Escherichia urinary tract infection [Unknown]
  - Pneumonia [Unknown]
  - Malignant melanoma [Unknown]
  - Palpitations [Unknown]
  - Tachycardia [Unknown]
  - Bronchitis [Unknown]
  - Eye infection [Unknown]
  - Fungal skin infection [Unknown]
  - Furuncle [Unknown]
  - Gastroenteritis [Unknown]
  - Gastroenteritis viral [Unknown]
  - Genital herpes [Unknown]
  - Genital infection fungal [Unknown]
  - Herpes simplex [Unknown]
  - Influenza [Unknown]
  - Latent tuberculosis [Unknown]
  - Localised infection [Unknown]
  - Nail bed infection [Unknown]
  - Nasopharyngitis [Unknown]
  - Nipple infection [Unknown]
  - Oral herpes [Unknown]
  - Paronychia [Unknown]
  - Pharyngitis [Unknown]
  - Respiratory tract infection [Unknown]
  - Rhinitis [Unknown]
  - Sinusitis [Unknown]
  - Subcutaneous abscess [Unknown]
  - Tinea versicolour [Unknown]
  - Tonsillitis [Unknown]
  - Tooth infection [Unknown]
  - Upper respiratory tract infection [Unknown]
  - Urinary tract infection [Unknown]
  - Varicella [Unknown]
  - Weight increased [Unknown]
  - Osteoporosis [Unknown]
  - Anaemia [Unknown]
  - Eosinophilia [Unknown]
  - Hilar lymphadenopathy [Unknown]
  - Increased tendency to bruise [Unknown]
  - Leukopenia [Unknown]
  - Neutropenia [Unknown]
  - Thrombocytopenia [Unknown]
  - Tinnitus [Unknown]
  - Vertigo positional [Unknown]
  - Blepharitis [Unknown]
  - Cataract [Unknown]
  - Dry eye [Unknown]
  - Eye inflammation [Unknown]
  - Eye irritation [Unknown]
  - Eye pain [Unknown]
  - Keratitis [Unknown]
  - Ocular hyperaemia [Unknown]
  - Abdominal discomfort [Unknown]
  - Abdominal distension [Unknown]
  - Abdominal pain [Unknown]
  - Abdominal pain lower [Unknown]
  - Abdominal pain upper [Unknown]
  - Anal haemorrhage [Unknown]
  - Angular cheilitis [Unknown]
  - Aphthous ulcer [Unknown]
  - Cheilitis [Unknown]
  - Constipation [Unknown]
  - Diarrhoea [Unknown]
  - Diverticulum [Unknown]
  - Dry mouth [Unknown]
  - Dyspepsia [Unknown]
  - Flatulence [Unknown]
  - Gastritis [Unknown]
  - Haematochezia [Unknown]
  - Inguinal hernia [Unknown]
  - Lip blister [Unknown]
  - Lip ulceration [Unknown]
  - Mouth ulceration [Unknown]
  - Nausea [Unknown]
  - Oral mucosal blistering [Unknown]
  - Paraesthesia oral [Unknown]
  - Periodontal disease [Unknown]
  - Proctitis [Unknown]
  - Stomatitis [Unknown]
  - Tooth loss [Unknown]
  - Toothache [Unknown]
  - Vomiting [Unknown]
  - Chest discomfort [Unknown]
  - Chest pain [Unknown]
  - Face oedema [Unknown]
  - Fatigue [Unknown]
  - Impaired healing [Unknown]
  - Influenza like illness [Unknown]
  - Infusion site swelling [Unknown]
  - Injection site irritation [Unknown]
  - Injection site joint pain [Unknown]
  - Injection site rash [Unknown]
  - Injection site reaction [Unknown]
  - Malaise [Unknown]
  - Oedema peripheral [Unknown]
  - Pyrexia [Unknown]
  - Swelling [Unknown]
  - Tenderness [Unknown]
  - Thirst [Unknown]
  - Cholelithiasis [Unknown]
  - Jaundice [Unknown]
  - Hypersensitivity [Unknown]
  - Herpes zoster [Unknown]
  - Infected bite [Unknown]
  - Parotid abscess [Unknown]
  - Pharyngitis streptococcal [Unknown]
  - Postoperative wound infection [Unknown]
  - Rash pustular [Unknown]
  - Viral diarrhoea [Unknown]
  - Viral infection [Unknown]
  - Animal bite [Unknown]
  - Arthropod bite [Unknown]
  - Contusion [Unknown]
  - Humerus fracture [Unknown]
  - Ligament sprain [Unknown]
  - Limb injury [Unknown]
  - Nail injury [Unknown]
  - Post-traumatic pain [Unknown]
  - Procedural pain [Unknown]
  - Radius fracture [Unknown]
  - Skin abrasion [Unknown]
  - Skin wound [Unknown]
  - Tendon rupture [Unknown]
  - Thermal burn [Unknown]
  - Toxicity to various agents [Unknown]
  - Wound [Unknown]
  - Alanine aminotransferase increased [Unknown]
  - Angiocardiogram [Unknown]
  - Aspartate aminotransferase increased [Unknown]
  - Biopsy lung [Unknown]
  - Blood bilirubin increased [Unknown]
  - Blood cholesterol increased [Unknown]
  - Blood creatinine decreased [Unknown]
  - Blood creatinine increased [Unknown]
  - Blood pressure increased [Unknown]
  - Blood triglycerides increased [Unknown]
  - Haemoglobin decreased [Unknown]
  - Hepatic enzyme increased [Unknown]
  - Lipids increased [Unknown]
  - Mean cell volume increased [Unknown]
  - Neutrophil count decreased [Unknown]
  - Platelet count decreased [Unknown]
  - Scan myocardial perfusion [Unknown]
  - Smear cervix [Unknown]
  - Transaminases increased [Unknown]
  - Weight decreased [Unknown]
  - White blood cell count decreased [Unknown]
  - Decreased appetite [Unknown]
  - Hypercholesterolaemia [Unknown]
  - Hyperlipidaemia [Unknown]
  - Hypertriglyceridaemia [Unknown]
  - Vitamin B12 deficiency [Unknown]
  - Arthralgia [Unknown]
  - Back pain [Unknown]
  - Exostosis [Unknown]
  - Groin pain [Unknown]
  - Joint swelling [Unknown]
  - Muscle spasms [Unknown]
  - Musculoskeletal pain [Unknown]
  - Myalgia [Unknown]
  - Osteoarthritis [Unknown]
  - Pain in extremity [Unknown]
  - Pain in jaw [Unknown]
  - Synovial cyst [Unknown]
  - Tendonitis [Unknown]
  - Colorectal adenoma [Unknown]
  - Lentigo maligna [Unknown]
  - Prostate cancer [Unknown]
  - Anosmia [Unknown]
  - Balance disorder [Unknown]
  - Carpal tunnel syndrome [Unknown]
  - Dizziness [Unknown]
  - Dysgeusia [Unknown]
  - Head discomfort [Unknown]
  - Headache [Unknown]
  - Loss of proprioception [Unknown]
  - Memory impairment [Unknown]
  - Migraine with aura [Unknown]
  - Paraesthesia [Unknown]
  - Presyncope [Unknown]
  - Syncope [Unknown]
  - Taste disorder [Unknown]
  - Tremor [Unknown]
  - Depressed mood [Unknown]
  - Depression [Unknown]
  - Emotional distress [Unknown]
  - Insomnia [Unknown]
  - Nervousness [Unknown]
  - Panic attack [Unknown]
  - Stress [Unknown]
  - Dysuria [Unknown]
  - Haematuria [Unknown]
  - Breast mass [Unknown]
  - Genital swelling [Unknown]
  - Heavy menstrual bleeding [Unknown]
  - Vulvovaginal pruritus [Unknown]
  - Chronic obstructive pulmonary disease [Unknown]
  - Cough [Unknown]
  - Dysphonia [Unknown]
  - Dyspnoea [Unknown]
  - Epistaxis [Unknown]
  - Hypersensitivity pneumonitis [Unknown]
  - Nasal congestion [Unknown]
  - Nasal discomfort [Unknown]
  - Nasal ulcer [Unknown]
  - Oropharyngeal pain [Unknown]
  - Productive cough [Unknown]
  - Pulmonary embolism [Unknown]
  - Pulmonary fibrosis [Unknown]
  - Rhinitis allergic [Unknown]
  - Throat lesion [Unknown]
  - Alopecia [Unknown]
  - Blister [Unknown]
  - Dry skin [Unknown]
  - Ecchymosis [Unknown]
  - Eczema [Unknown]
  - Erythema [Unknown]
  - Hyperhidrosis [Unknown]
  - Night sweats [Unknown]
  - Photosensitivity reaction [Unknown]
  - Pruritus [Unknown]
  - Purpura [Unknown]
  - Rash [Unknown]
  - Rash erythematous [Unknown]
  - Rash pruritic [Unknown]
  - Sebaceous gland disorder [Unknown]
  - Skin discolouration [Unknown]
  - Skin hyperpigmentation [Unknown]
  - Skin lesion [Unknown]
  - Skin ulcer [Unknown]
  - Solar dermatitis [Unknown]
  - Urticaria [Unknown]
  - Physical abuse [Unknown]
  - Haematoma [Unknown]
  - Hot flush [Unknown]
  - Hypertension [Unknown]
  - Poor peripheral circulation [Unknown]
  - Diarrhoea haemorrhagic [Unknown]
  - Haemorrhoidal haemorrhage [Unknown]
  - Tracheitis [Unknown]
